FAERS Safety Report 10606909 (Version 1)
Quarter: 2014Q4

REPORT INFORMATION
  Report Type: Spontaneous
  Country: US (occurrence: None)
  Receive Date: 20141124
  Receipt Date: 20141124
  Transmission Date: 20150529
  Serious: No
  Sender: FDA-Public Use
  Company Number: None

PATIENT
  Age: 90 Year
  Sex: Male

DRUGS (1)
  1. LUPRON [Suspect]
     Active Substance: LEUPROLIDE ACETATE
     Indication: PROSTATE CANCER
     Dosage: 22.5 MG 5 MG Q3MONTHS INTRAMUSCULARLY
     Route: 030
     Dates: start: 20080528, end: 20141014

REACTIONS (1)
  - Hospice care [None]

NARRATIVE: CASE EVENT DATE: 20141014
